FAERS Safety Report 24149443 (Version 1)
Quarter: 2024Q3

REPORT INFORMATION
  Report Type: Spontaneous
  Country: IN (occurrence: IN)
  Receive Date: 20240730
  Receipt Date: 20240730
  Transmission Date: 20241017
  Serious: Yes (Hospitalization)
  Sender: STRIDES
  Company Number: IN-STRIDES ARCOLAB LIMITED-2024SP009319

PATIENT

DRUGS (1)
  1. METHOTREXATE [Suspect]
     Active Substance: METHOTREXATE
     Indication: Rheumatoid arthritis
     Dosage: 10 MILLIGRAM, QD, THE PATIENT TOOK 10MG DAILY FOR 15?DAYS (TOTAL 150MG OVER 15?DAYS) ACCIDENTALLY IN
     Route: 065

REACTIONS (5)
  - Inappropriate schedule of product administration [Unknown]
  - Toxicity to various agents [Unknown]
  - Pancytopenia [Recovered/Resolved]
  - Acute kidney injury [Recovered/Resolved]
  - Stomatitis [Unknown]
